FAERS Safety Report 10030729 (Version 1)
Quarter: 2014Q1

REPORT INFORMATION
  Report Type: Spontaneous
  Country: US (occurrence: US)
  Receive Date: 20140323
  Receipt Date: 20140323
  Transmission Date: 20141002
  Serious: No
  Sender: FDA-Public Use
  Company Number: US-ALLERGAN-1401539US

PATIENT
  Age: 57 Year
  Sex: Female

DRUGS (2)
  1. LATISSE 0.03% [Suspect]
     Indication: GROWTH OF EYELASHES
     Dosage: UNK, QHS
     Route: 061
     Dates: start: 20140125, end: 20140125
  2. LATISSE 0.03% [Suspect]
     Dosage: UNK
     Route: 047

REACTIONS (11)
  - Incorrect dose administered [Unknown]
  - Eyelid sensory disorder [Recovered/Resolved]
  - Blepharal pigmentation [Recovered/Resolved]
  - Inappropriate schedule of drug administration [Unknown]
  - Eye pain [Unknown]
  - Eye disorder [Unknown]
  - Eyelid irritation [Recovering/Resolving]
  - Eye pain [Unknown]
  - Eye discharge [Unknown]
  - Ocular hyperaemia [Unknown]
  - Eye irritation [Recovering/Resolving]
